FAERS Safety Report 5706615-2 (Version None)
Quarter: 2008Q2

REPORT INFORMATION
  Report Type: 
  Country: None (occurrence: None)
  Receive Date: 20080415
  Receipt Date: 20080402
  Transmission Date: 20081010
  Serious: Yes (Other)
  Sender: FDA-Public Use
  Company Number: CH-ELI_LILLY_AND_COMPANY-CH200802001936

PATIENT
  Sex: Male

DRUGS (9)
  1. CYMBALTA [Suspect]
     Indication: BIPOLAR DISORDER
     Dosage: UNK, UNKNOWN
     Route: 048
     Dates: start: 20070609, end: 20070717
  2. CYMBALTA [Interacting]
     Dosage: 60 MG, DAILY (1/D)
     Route: 048
     Dates: start: 20070718, end: 20070728
  3. CYMBALTA [Interacting]
     Dosage: 30 MG, DAILY (1/D)
     Route: 048
     Dates: start: 20070729, end: 20080123
  4. CYMBALTA [Interacting]
     Dosage: 30 MG
     Route: 048
     Dates: start: 20080101, end: 20080101
  5. CYMBALTA [Interacting]
     Dosage: 15 MG, DAILY (1/D)
     Route: 048
     Dates: start: 20080101, end: 20080101
  6. CYMBALTA [Interacting]
     Dosage: 15 MG, EVERY 2-3 DAYS
     Route: 048
     Dates: start: 20080201
  7. EFFEXOR [Concomitant]
     Dosage: UNK, UNKNOWN
     Route: 065
     Dates: end: 20070717
  8. LITHIOFOR [Concomitant]
     Indication: DEPRESSION
     Dosage: 660 MG, 2/D
     Route: 048
  9. REBALANCE [Interacting]
     Dosage: UNK, UNKNOWN
     Route: 065
     Dates: start: 20080123, end: 20080207

REACTIONS (9)
  - CHILLS [None]
  - DRUG INTERACTION [None]
  - DRUG WITHDRAWAL SYNDROME [None]
  - DRY MOUTH [None]
  - ERECTILE DYSFUNCTION [None]
  - HYPERHIDROSIS [None]
  - NYSTAGMUS [None]
  - SOMNOLENCE [None]
  - YAWNING [None]
